FAERS Safety Report 24002707 (Version 1)
Quarter: 2024Q2

REPORT INFORMATION
  Report Type: Spontaneous
  Country: IN (occurrence: IN)
  Receive Date: 20240624
  Receipt Date: 20240624
  Transmission Date: 20240715
  Serious: Yes (Hospitalization)
  Sender: FDA-Public Use
  Company Number: IN-Accord-430997

PATIENT
  Age: 69 Year
  Sex: Male

DRUGS (3)
  1. QUETIAPINE [Suspect]
     Active Substance: QUETIAPINE
     Indication: Obsessive-compulsive disorder
  2. CLOBAZAM [Suspect]
     Active Substance: CLOBAZAM
     Indication: Obsessive-compulsive disorder
  3. Glimepiride, Metformin, Voglibose [Concomitant]
     Indication: Type 2 diabetes mellitus

REACTIONS (1)
  - Osmotic demyelination syndrome [Recovering/Resolving]
